FAERS Safety Report 17372833 (Version 1)
Quarter: 2020Q1

REPORT INFORMATION
  Report Type: Spontaneous
  Country: US (occurrence: US)
  Receive Date: 20200205
  Receipt Date: 20200205
  Transmission Date: 20200409
  Serious: Yes (Life-Threatening, Hospitalization, Other)
  Sender: FDA-Public Use
  Company Number: US-SCIEGEN PHARMACEUTICALS INC-2020SCILIT00016

PATIENT
  Age: 49 Year
  Sex: Male

DRUGS (3)
  1. FOMEPIZOLE. [Interacting]
     Active Substance: FOMEPIZOLE
  2. SODIUM BICARBONATE. [Interacting]
     Active Substance: SODIUM BICARBONATE
  3. METFORMIN HYDROCHLORIDETABLETS [Suspect]
     Active Substance: METFORMIN HYDROCHLORIDE

REACTIONS (10)
  - Mental status changes [Recovered/Resolved]
  - Blood osmolarity increased [Recovered/Resolved]
  - Starvation ketoacidosis [Recovered/Resolved]
  - Hypoglycaemia [Recovered/Resolved]
  - Tachypnoea [Recovered/Resolved]
  - Tachycardia [Recovered/Resolved]
  - Abdominal pain [Recovered/Resolved]
  - Lactic acidosis [Recovered/Resolved]
  - Nausea [Recovered/Resolved]
  - Hypophagia [Recovered/Resolved]
